FAERS Safety Report 18424828 (Version 1)
Quarter: 2020Q4

REPORT INFORMATION
  Report Type: Spontaneous
  Country: SE (occurrence: SE)
  Receive Date: 20201026
  Receipt Date: 20201026
  Transmission Date: 20210114
  Serious: Yes (Other)
  Sender: FDA-Public Use
  Company Number: SE-ACCORD-206215

PATIENT
  Age: 77 Year
  Sex: Female

DRUGS (7)
  1. FLUOXETINE [Concomitant]
     Active Substance: FLUOXETINE HYDROCHLORIDE
  2. METOPROLOL. [Concomitant]
     Active Substance: METOPROLOL
  3. SPIRONOLACTONE ACCORD [Suspect]
     Active Substance: SPIRONOLACTONE
     Indication: HYPOKALAEMIA
     Dosage: STRENGTH:25MG
     Route: 048
  4. CALCICHEW [Concomitant]
     Active Substance: CALCIUM CARBONATE
  5. SPIRONOLACTONE ACCORD [Suspect]
     Active Substance: SPIRONOLACTONE
     Indication: DYSPNOEA
     Dosage: STRENGTH:25MG
  6. ENALAPRIL [Concomitant]
     Active Substance: ENALAPRIL
  7. SALURES [Concomitant]
     Active Substance: BENDROFLUMETHIAZIDE

REACTIONS (3)
  - Off label use [Unknown]
  - Pruritus [Not Recovered/Not Resolved]
  - Rash [Not Recovered/Not Resolved]

NARRATIVE: CASE EVENT DATE: 20200920
